FAERS Safety Report 7933076-5 (Version None)
Quarter: 2011Q4

REPORT INFORMATION
  Report Type: 
  Country: None (occurrence: None)
  Receive Date: 20111122
  Receipt Date: 20110822
  Transmission Date: 20120403
  Serious: No
  Sender: FDA-Public Use
  Company Number: US-BAYER-2011-083275

PATIENT
  Age: 80 Year
  Sex: Female
  Weight: 63 kg

DRUGS (4)
  1. PRAVASTATIN [Concomitant]
  2. MULTIPLE VITAMINS [Concomitant]
  3. ASPIRIN [Concomitant]
  4. ALEVE (CAPLET) [Suspect]
     Indication: MYALGIA
     Dosage: 2 DF, QD

REACTIONS (1)
  - MYALGIA [None]
